FAERS Safety Report 5680529-9 (Version None)
Quarter: 2008Q1

REPORT INFORMATION
  Report Type: 
  Country: None (occurrence: None)
  Receive Date: 20080326
  Receipt Date: 20080320
  Transmission Date: 20080703
  Serious: Yes (Other)
  Sender: FDA-Public Use
  Company Number: US-ASTRAZENECA-2008UW05715

PATIENT
  Age: 66 Year
  Sex: Female
  Weight: 86.2 kg

DRUGS (6)
  1. CRESTOR [Suspect]
     Route: 048
     Dates: start: 20080208
  2. OMEPRAZOLE [Concomitant]
  3. LISINOPRIL AND HYDROCHLOROTHIAZIDE [Concomitant]
     Route: 048
  4. ASPIRIN [Concomitant]
  5. CALCIUM [Concomitant]
  6. FISH OIL [Concomitant]

REACTIONS (9)
  - BACK PAIN [None]
  - DIZZINESS [None]
  - EAR CONGESTION [None]
  - EYE HAEMORRHAGE [None]
  - GAIT DISTURBANCE [None]
  - GROIN PAIN [None]
  - MEDICATION ERROR [None]
  - PAIN IN EXTREMITY [None]
  - VOMITING [None]
